FAERS Safety Report 18830188 (Version 1)
Quarter: 2021Q1

REPORT INFORMATION
  Report Type: Spontaneous
  Country: US (occurrence: US)
  Receive Date: 20210201
  Receipt Date: 20210201
  Transmission Date: 20210419
  Serious: No
  Sender: FDA-Public Use
  Company Number: US-ABBVIE-20K-163-3657578-00

PATIENT
  Sex: Female

DRUGS (1)
  1. HUMIRA [Suspect]
     Active Substance: ADALIMUMAB
     Indication: PRODUCT USED FOR UNKNOWN INDICATION
     Route: 058

REACTIONS (9)
  - Chronic disease [Unknown]
  - Hypertension [Recovering/Resolving]
  - Headache [Unknown]
  - Ankylosing spondylitis [Unknown]
  - Feeling abnormal [Not Recovered/Not Resolved]
  - Anxiety [Unknown]
  - Disorientation [Recovered/Resolved]
  - Pain [Unknown]
  - Dizziness [Unknown]
